FAERS Safety Report 5897476-X (Version None)
Quarter: 2008Q3

REPORT INFORMATION
  Report Type: 
  Country: None (occurrence: None)
  Receive Date: 20080925
  Receipt Date: 20080923
  Transmission Date: 20090109
  Serious: Yes (Hospitalization)
  Sender: FDA-Public Use
  Company Number: US-BRISTOL-MYERS SQUIBB COMPANY-14344766

PATIENT
  Age: 42 Year
  Sex: Female
  Weight: 81 kg

DRUGS (5)
  1. COUMADIN [Suspect]
     Indication: PULMONARY EMBOLISM
     Dosage: 1 DOSAGE FORM=1 1/2 TABLETS COUMADIN 5MG
     Dates: start: 20080101
  2. BENADRYL [Suspect]
     Indication: SINUSITIS
     Dosage: 1 DF - 1 TABLET
  3. LEVOXYL [Concomitant]
  4. LEVOTHYROXINE SODIUM [Concomitant]
  5. LOVENOX [Concomitant]

REACTIONS (4)
  - EYE SWELLING [None]
  - HEADACHE [None]
  - INTERNATIONAL NORMALISED RATIO DECREASED [None]
  - VISION BLURRED [None]
